FAERS Safety Report 5629453-8 (Version None)
Quarter: 2008Q1

REPORT INFORMATION
  Report Type: 
  Country: None (occurrence: None)
  Receive Date: 20080215
  Receipt Date: 20080215
  Transmission Date: 20080703
  Serious: Yes (Other)
  Sender: FDA-Public Use
  Company Number: None

PATIENT
  Age: 62 Year
  Sex: Female

DRUGS (1)
  1. DICLOFENAC, 75MG, WATSON LABS [Suspect]
     Indication: TENDONITIS
     Dosage: 75 MG 1 TAB TWICE A DAY ORAL
     Route: 048
     Dates: start: 20071204, end: 20071210

REACTIONS (2)
  - CHEST PAIN [None]
  - PAIN IN EXTREMITY [None]
